FAERS Safety Report 5513430-1 (Version None)
Quarter: 2007Q4

REPORT INFORMATION
  Report Type: 
  Country: None (occurrence: None)
  Receive Date: 20071112
  Receipt Date: 20071106
  Transmission Date: 20080405
  Serious: Yes (Hospitalization, Other)
  Sender: FDA-Public Use
  Company Number: US-PFIZER INC-2007081336

PATIENT
  Sex: Female
  Weight: 70.3 kg

DRUGS (11)
  1. LIPITOR [Suspect]
     Indication: BLOOD CHOLESTEROL INCREASED
     Dates: start: 19970101, end: 20070701
  2. CRESTOR [Suspect]
     Indication: BLOOD CHOLESTEROL INCREASED
     Dates: start: 20070701, end: 20070801
  3. LANTUS [Concomitant]
  4. HUMALOG [Concomitant]
  5. CYMBALTA [Concomitant]
  6. SYNTHROID [Concomitant]
  7. TOPROL-XL [Concomitant]
  8. LASIX [Concomitant]
  9. ACETYLSALICYLIC ACID SRT [Concomitant]
  10. LISINOPRIL [Concomitant]
  11. DARVOCET [Concomitant]

REACTIONS (19)
  - BLOOD UREA NITROGEN/CREATININE RATIO INCREASED [None]
  - ELECTROLYTE IMBALANCE [None]
  - HALLUCINATION [None]
  - HIP FRACTURE [None]
  - HYPOAESTHESIA [None]
  - HYPONATRAEMIA [None]
  - MUSCLE SPASMS [None]
  - MYALGIA [None]
  - OEDEMA PERIPHERAL [None]
  - OSTEOPOROSIS [None]
  - PAIN IN EXTREMITY [None]
  - PRURITUS [None]
  - RASH [None]
  - SKIN TIGHTNESS [None]
  - SWELLING [None]
  - VASCULAR OCCLUSION [None]
  - WAIST CIRCUMFERENCE INCREASED [None]
  - WALKING AID USER [None]
  - WEIGHT INCREASED [None]
